FAERS Safety Report 19496241 (Version 1)
Quarter: 2021Q3

REPORT INFORMATION
  Report Type: Spontaneous
  Country: US (occurrence: US)
  Receive Date: 20210702
  Receipt Date: 20210702
  Transmission Date: 20211014
  Serious: Yes (Other)
  Sender: FDA-Public Use
  Company Number: None

PATIENT
  Age: 72 Year
  Sex: Female

DRUGS (1)
  1. PREPARATION H CREAM MAX STRENGTH [Suspect]
     Active Substance: GLYCERIN\PETROLATUM\PHENYLEPHRINE HYDROCHLORIDE\PRAMOXINE HYDROCHLORIDE
     Indication: HAEMORRHOIDS
     Dosage: ?          OTHER FREQUENCY:TWO TO FOUR TIMES;?
     Route: 054
     Dates: start: 20210619, end: 20210630

REACTIONS (2)
  - Haemorrhage [None]
  - Haematochezia [None]

NARRATIVE: CASE EVENT DATE: 20210629
